FAERS Safety Report 13075834 (Version 1)
Quarter: 2016Q4

REPORT INFORMATION
  Report Type: Spontaneous
  Country: CH (occurrence: CH)
  Receive Date: 20161230
  Receipt Date: 20161230
  Transmission Date: 20170207
  Serious: Yes (Other)
  Sender: FDA-Public Use
  Company Number: CH-KADMON PHARMACEUTICALS, LLC-KAD201612-004750

PATIENT
  Age: 52 Year
  Sex: Male
  Weight: 60 kg

DRUGS (14)
  1. KIVEXA [Suspect]
     Active Substance: ABACAVIR SULFATE\LAMIVUDINE
     Dates: start: 20120124
  2. BOCEPREVIR [Suspect]
     Active Substance: BOCEPREVIR
     Indication: CHRONIC HEPATITIS C
     Route: 048
     Dates: start: 20111122, end: 20121015
  3. PEG INF [Suspect]
     Active Substance: PEGINTERFERON ALFA-2A
     Indication: CHRONIC HEPATITIS C
     Route: 058
     Dates: start: 20111122, end: 20121015
  4. RIBAVIRIN. [Suspect]
     Active Substance: RIBAVIRIN
     Indication: CHRONIC HEPATITIS C
     Route: 048
     Dates: start: 20111122, end: 20121015
  5. ISENTRESS [Suspect]
     Active Substance: RALTEGRAVIR POTASSIUM
     Indication: HIV INFECTION
     Route: 048
     Dates: start: 20081118, end: 20090220
  6. INTELENCE [Suspect]
     Active Substance: ETRAVIRINE
     Dates: start: 20101214, end: 20110106
  7. INTELENCE [Suspect]
     Active Substance: ETRAVIRINE
     Dates: start: 20110111, end: 20111022
  8. METHADONE [Concomitant]
     Active Substance: METHADONE HYDROCHLORIDE
     Dates: start: 1992
  9. TRUVADA [Suspect]
     Active Substance: EMTRICITABINE\TENOFOVIR DISOPROXIL FUMARATE
     Indication: HIV INFECTION
     Dosage: TABLET
     Route: 048
     Dates: start: 20070827, end: 20100820
  10. ISENTRESS [Suspect]
     Active Substance: RALTEGRAVIR POTASSIUM
     Route: 048
     Dates: start: 20111022
  11. INTELENCE [Suspect]
     Active Substance: ETRAVIRINE
     Indication: HIV INFECTION
     Dates: start: 20090220, end: 20100820
  12. TRUVADA [Suspect]
     Active Substance: EMTRICITABINE\TENOFOVIR DISOPROXIL FUMARATE
     Dosage: TABLET
     Route: 048
     Dates: start: 20110111, end: 20120124
  13. KIVEXA [Suspect]
     Active Substance: ABACAVIR SULFATE\LAMIVUDINE
     Indication: HIV INFECTION
     Dates: start: 20101214, end: 20110106
  14. ESOMEPRAZOLE [Concomitant]
     Active Substance: ESOMEPRAZOLE
     Dates: start: 20120701

REACTIONS (12)
  - Chronic hepatitis C [Recovered/Resolved]
  - Arterial disorder [Unknown]
  - Underweight [Unknown]
  - Benign prostatic hyperplasia [Unknown]
  - Hypertension [Unknown]
  - Chronic kidney disease [Unknown]
  - Haemochromatosis [Unknown]
  - Depression [Unknown]
  - Hepatic cirrhosis [Unknown]
  - Child-Pugh-Turcotte score increased [Unknown]
  - Hypercholesterolaemia [Unknown]
  - Weight decreased [Unknown]

NARRATIVE: CASE EVENT DATE: 201407
